FAERS Safety Report 4344851-0 (Version None)
Quarter: 2004Q2

REPORT INFORMATION
  Report Type: 
  Country: None (occurrence: None)
  Receive Date: 20040420
  Receipt Date: 20040408
  Transmission Date: 20050107
  Serious: Yes (Hospitalization)
  Sender: FDA-Public Use
  Company Number: 04P-163-0257346

PATIENT
  Age: 84 Year
  Sex: Female

DRUGS (7)
  1. TARKA [Suspect]
     Indication: ATRIAL FIBRILLATION
     Dosage: 1 IN 1 D
     Dates: start: 20040331, end: 20040403
  2. LOSARTAN POTASSIUM [Concomitant]
  3. GUANFACINE HYDROCHLORIDE [Concomitant]
  4. FUROSEMIDE [Concomitant]
  5. POTASSIUM [Concomitant]
  6. REMEDEX [Concomitant]
  7. ARIMIDEX [Concomitant]

REACTIONS (1)
  - RENAL FAILURE [None]
